FAERS Safety Report 12076678 (Version 17)
Quarter: 2017Q3

REPORT INFORMATION
  Report Type: Report from Study
  Country: CA (occurrence: CA)
  Receive Date: 20160215
  Receipt Date: 20170831
  Transmission Date: 20171127
  Serious: Yes (Hospitalization, Other)
  Sender: FDA-Public Use
  Company Number: CA-ROCHE-1710824

PATIENT
  Age: 87 Year
  Sex: Female

DRUGS (6)
  1. ACTEMRA [Suspect]
     Active Substance: TOCILIZUMAB
     Indication: RHEUMATOID ARTHRITIS
     Dosage: UNKNOWN FREQUENCY
     Route: 042
     Dates: start: 20160118
  2. METHOTREXATE. [Concomitant]
     Active Substance: METHOTREXATE
  3. LIPITOR [Concomitant]
     Active Substance: ATORVASTATIN CALCIUM
  4. COVERSYL [Concomitant]
     Active Substance: PERINDOPRIL
  5. FOLIC ACID. [Concomitant]
     Active Substance: FOLIC ACID
  6. ACTEMRA [Suspect]
     Active Substance: TOCILIZUMAB
     Dosage: 17 INFUSION
     Route: 042
     Dates: start: 20170801

REACTIONS (19)
  - Pulmonary fibrosis [Not Recovered/Not Resolved]
  - Fatigue [Not Recovered/Not Resolved]
  - Blood pressure fluctuation [Unknown]
  - Hip fracture [Recovered/Resolved]
  - Eye discharge [Not Recovered/Not Resolved]
  - Myalgia [Not Recovered/Not Resolved]
  - Lung disorder [Unknown]
  - Feeling hot [Not Recovered/Not Resolved]
  - Pneumonia [Unknown]
  - Oxygen saturation decreased [Unknown]
  - Hyperaesthesia [Not Recovered/Not Resolved]
  - Limb mass [Not Recovered/Not Resolved]
  - Cataract [Not Recovered/Not Resolved]
  - Erythema [Not Recovered/Not Resolved]
  - Blood pressure diastolic decreased [Unknown]
  - Fall [Unknown]
  - Rib fracture [Unknown]
  - Wrist fracture [Not Recovered/Not Resolved]
  - Disability assessment scale score decreased [Unknown]

NARRATIVE: CASE EVENT DATE: 201603
